FAERS Safety Report 20601123 (Version 4)
Quarter: 2022Q3

REPORT INFORMATION
  Report Type: Spontaneous
  Country: JP (occurrence: JP)
  Receive Date: 20220316
  Receipt Date: 20220701
  Transmission Date: 20221027
  Serious: Yes (Hospitalization, Disabling)
  Sender: FDA-Public Use
  Company Number: JP-NOVARTISPH-NVSJ2022JP004477

PATIENT
  Age: 67 Year
  Sex: Female
  Weight: 57.5 kg

DRUGS (5)
  1. ZOMETA [Suspect]
     Active Substance: ZOLEDRONIC ACID
     Indication: Breast cancer metastatic
     Dosage: UNK
     Route: 041
     Dates: start: 20130416, end: 20170831
  2. ZOMETA [Suspect]
     Active Substance: ZOLEDRONIC ACID
     Indication: Metastases to bone
  3. DENOSUMAB [Suspect]
     Active Substance: DENOSUMAB
     Indication: Breast cancer metastatic
     Dosage: UNK
     Route: 065
     Dates: start: 20170928, end: 201807
  4. DENOSUMAB [Suspect]
     Active Substance: DENOSUMAB
     Indication: Metastases to bone
  5. FASLODEX [Concomitant]
     Active Substance: FULVESTRANT
     Indication: Breast cancer
     Dosage: UNK
     Route: 065
     Dates: start: 20130425

REACTIONS (10)
  - Osteonecrosis of jaw [Recovered/Resolved with Sequelae]
  - Swelling face [Recovered/Resolved]
  - Erythema [Recovered/Resolved]
  - Purulence [Unknown]
  - Pulpless tooth [Unknown]
  - Fistula [Unknown]
  - Mastication disorder [Unknown]
  - Pain [Unknown]
  - Feeding disorder [Unknown]
  - Exposed bone in jaw [Unknown]

NARRATIVE: CASE EVENT DATE: 20180928
